FAERS Safety Report 22981306 (Version 2)
Quarter: 2023Q4

REPORT INFORMATION
  Report Type: Spontaneous
  Country: US (occurrence: US)
  Receive Date: 20230925
  Receipt Date: 20231115
  Transmission Date: 20240109
  Serious: Yes (Other)
  Sender: FDA-Public Use
  Company Number: US-ELI_LILLY_AND_COMPANY-US202309008304

PATIENT

DRUGS (2)
  1. BEBTELOVIMAB [Suspect]
     Active Substance: BEBTELOVIMAB
     Indication: COVID-19
     Dosage: UNK, VACS THEN TWO BOOSTERS
     Route: 065
     Dates: start: 20220425
  2. COVID-19 VACCINE [Concomitant]
     Indication: Product used for unknown indication
     Dosage: UNK
     Dates: start: 20230105

REACTIONS (5)
  - Fall [Unknown]
  - Hip fracture [Unknown]
  - Fatigue [Unknown]
  - Diarrhoea [Unknown]
  - Brain fog [Unknown]

NARRATIVE: CASE EVENT DATE: 20221209
